FAERS Safety Report 14178324 (Version 1)
Quarter: 2017Q4

REPORT INFORMATION
  Report Type: Report from Study
  Country: US (occurrence: US)
  Receive Date: 20171110
  Receipt Date: 20171110
  Transmission Date: 20180321
  Serious: Yes (Other)
  Sender: FDA-Public Use
  Company Number: US-AMGEN-USASL2017166351

PATIENT
  Age: 57 Year
  Sex: Female

DRUGS (1)
  1. REPATHA [Suspect]
     Active Substance: EVOLOCUMAB
     Indication: HYPERCHOLESTEROLAEMIA
     Dosage: 140 MG, Q2WK
     Route: 065
     Dates: start: 2016

REACTIONS (7)
  - Visual impairment [Unknown]
  - Neuropathy peripheral [Unknown]
  - Blood glucose abnormal [Unknown]
  - Fatigue [Unknown]
  - Intentional product misuse [Unknown]
  - Memory impairment [Unknown]
  - Stress [Unknown]
